FAERS Safety Report 15299015 (Version 1)
Quarter: 2018Q3

REPORT INFORMATION
  Report Type: Spontaneous
  Country: US (occurrence: US)
  Receive Date: 20180808
  Receipt Date: 20180808
  Transmission Date: 20181010
  Serious: Yes (Disabling, Other)
  Sender: FDA-Public Use
  Company Number: None

PATIENT
  Age: 23 Year
  Sex: Female
  Weight: 49.9 kg

DRUGS (3)
  1. PRILOSEC [Concomitant]
     Active Substance: OMEPRAZOLE MAGNESIUM
  2. NEXPLANON [Suspect]
     Active Substance: ETONOGESTREL
     Indication: CONTRACEPTION
  3. NEXPLANON [Suspect]
     Active Substance: ETONOGESTREL
     Indication: ENDOMETRIOSIS

REACTIONS (3)
  - Depression [None]
  - Haemorrhage [None]
  - Libido decreased [None]

NARRATIVE: CASE EVENT DATE: 20160701
